FAERS Safety Report 16003481 (Version 3)
Quarter: 2019Q2

REPORT INFORMATION
  Report Type: Report from Study
  Country: None (occurrence: US)
  Receive Date: 20190226
  Receipt Date: 20190617
  Transmission Date: 20190711
  Serious: Yes (Hospitalization, Other)
  Sender: FDA-Public Use
  Company Number: US-ABBVIE-18K-163-2598927-00

PATIENT
  Age: 74 Year
  Sex: Female

DRUGS (3)
  1. HUMIRA [Suspect]
     Active Substance: ADALIMUMAB
     Route: 058
     Dates: start: 201902, end: 2019
  2. HUMIRA [Suspect]
     Active Substance: ADALIMUMAB
     Route: 058
     Dates: start: 20190315
  3. HUMIRA [Suspect]
     Active Substance: ADALIMUMAB
     Indication: RHEUMATOID ARTHRITIS
     Route: 058
     Dates: start: 20181205, end: 20181219

REACTIONS (13)
  - Arthralgia [Recovering/Resolving]
  - Atrial flutter [Unknown]
  - Gait disturbance [Recovering/Resolving]
  - Spinal osteoarthritis [Recovering/Resolving]
  - Joint stiffness [Unknown]
  - Drug ineffective [Unknown]
  - Influenza [Unknown]
  - Macular degeneration [Not Recovered/Not Resolved]
  - Joint swelling [Unknown]
  - Cystitis [Unknown]
  - Loss of personal independence in daily activities [Recovering/Resolving]
  - Anxiety [Recovering/Resolving]
  - Depression [Recovering/Resolving]

NARRATIVE: CASE EVENT DATE: 201812
